FAERS Safety Report 4683669-6 (Version None)
Quarter: 2005Q2

REPORT INFORMATION
  Report Type: 
  Country: None (occurrence: None)
  Receive Date: 20050607
  Receipt Date: 20050526
  Transmission Date: 20051028
  Serious: Yes (Other)
  Sender: FDA-Public Use
  Company Number: CA-JNJFOC-20050507371

PATIENT
  Sex: Female
  Weight: 63.2 kg

DRUGS (2)
  1. ORTHO EVRA [Suspect]
     Indication: OFF LABEL USE
     Route: 062
     Dates: start: 20040601, end: 20041008
  2. ORTHO EVRA [Suspect]
     Route: 062
     Dates: start: 20040601, end: 20041008

REACTIONS (7)
  - ANAEMIA [None]
  - BLOOD PRESSURE INCREASED [None]
  - HAEMOGLOBIN DECREASED [None]
  - HEADACHE [None]
  - MENORRHAGIA [None]
  - MUSCLE SPASMS [None]
  - SERUM FERRITIN DECREASED [None]
